FAERS Safety Report 18564861 (Version 1)
Quarter: 2020Q4

REPORT INFORMATION
  Report Type: Spontaneous
  Country: AT (occurrence: AT)
  Receive Date: 20201201
  Receipt Date: 20201201
  Transmission Date: 20210114
  Serious: Yes (Other)
  Sender: FDA-Public Use
  Company Number: AT-PFIZER INC-2020467205

PATIENT
  Sex: Female

DRUGS (3)
  1. FULVESTRANT. [Concomitant]
     Active Substance: FULVESTRANT
     Dosage: 500 MG
     Route: 030
  2. LETROZOL [Suspect]
     Active Substance: LETROZOLE
     Indication: HER2 NEGATIVE BREAST CANCER
     Dosage: 2.5 MG, CYCLIC (PER DAY/EVERY 4 WEEKS)
     Dates: start: 201702
  3. IBRANCE [Suspect]
     Active Substance: PALBOCICLIB
     Indication: HER2 NEGATIVE BREAST CANCER
     Dosage: 125 MG, CYCLIC (1X/DAY AT DAY 1-21)
     Dates: start: 201702

REACTIONS (13)
  - General physical health deterioration [Unknown]
  - Neutropenia [Unknown]
  - Chest pain [Unknown]
  - Fatigue [Unknown]
  - Orthopnoea [Unknown]
  - Nausea [Recovered/Resolved]
  - Neoplasm progression [Unknown]
  - Back pain [Unknown]
  - Pleural effusion [Unknown]
  - Dyspnoea at rest [Unknown]
  - Intentional dose omission [Unknown]
  - Weight decreased [Unknown]
  - Dyspnoea exertional [Unknown]

NARRATIVE: CASE EVENT DATE: 2017
